FAERS Safety Report 4322552-2 (Version None)
Quarter: 2004Q1

REPORT INFORMATION
  Report Type: 
  Country: None (occurrence: None)
  Receive Date: 20040324
  Receipt Date: 20031224
  Transmission Date: 20041129
  Serious: Yes (Hospitalization)
  Sender: FDA-Public Use
  Company Number: US-BRISTOL-MYERS SQUIBB COMPANY-12464582

PATIENT
  Age: 71 Year
  Sex: Female
  Weight: 42 kg

DRUGS (9)
  1. TAXOL [Suspect]
     Indication: NON-SMALL CELL LUNG CANCER
     Route: 042
     Dates: start: 20010731, end: 20010903
  2. CARBOPLATIN [Suspect]
     Indication: NON-SMALL CELL LUNG CANCER
     Dosage: AUC 2
     Route: 042
     Dates: start: 20010731, end: 20010905
  3. CELEBREX [Suspect]
     Dates: start: 20010726, end: 20010912
  4. ASPIRIN [Concomitant]
  5. DILTIAZEM CD [Concomitant]
  6. DOCUSATE SODIUM [Concomitant]
  7. EPOGEN [Concomitant]
  8. DILAUDID [Concomitant]
     Indication: PAIN
  9. QUININE SULFATE [Concomitant]
     Indication: MUSCLE CRAMP

REACTIONS (10)
  - BLOOD SODIUM DECREASED [None]
  - DIARRHOEA [None]
  - DIZZINESS POSTURAL [None]
  - HAEMOGLOBIN DECREASED [None]
  - HERPES ZOSTER [None]
  - LARGE INTESTINAL OBSTRUCTION [None]
  - MARKEDLY REDUCED DIETARY INTAKE [None]
  - NAUSEA [None]
  - OESOPHAGITIS [None]
  - VOMITING [None]
